FAERS Safety Report 5831462-0 (Version None)
Quarter: 2008Q3

REPORT INFORMATION
  Report Type: 
  Country: None (occurrence: None)
  Receive Date: 20080801
  Receipt Date: 20080715
  Transmission Date: 20090109
  Serious: Yes (Hospitalization)
  Sender: FDA-Public Use
  Company Number: CA-GENENTECH-228457

PATIENT
  Sex: Female
  Weight: 98.7 kg

DRUGS (7)
  1. BEVACIZUMAB [Suspect]
     Indication: BREAST CANCER METASTATIC
     Dosage: 15 MG/KG, Q3W
     Route: 042
     Dates: start: 20060502
  2. DOCETAXEL [Suspect]
     Indication: BREAST CANCER METASTATIC
     Dosage: 156 MG, Q3W
     Route: 042
     Dates: start: 20060502
  3. DOCETAXEL [Suspect]
     Dosage: 75 MG/M2, Q3W
     Route: 042
  4. DOCETAXEL [Suspect]
     Dosage: 60 MG/M2, Q3W
     Route: 042
     Dates: start: 20060712
  5. IMMOVANE [Concomitant]
     Indication: DRUG USE FOR UNKNOWN INDICATION
     Dates: start: 20060425
  6. ADVIL [Concomitant]
     Indication: DRUG USE FOR UNKNOWN INDICATION
     Dates: start: 20030615
  7. DIOVAN [Concomitant]
     Indication: DRUG USE FOR UNKNOWN INDICATION
     Dates: start: 20000524

REACTIONS (2)
  - CLOSTRIDIAL INFECTION [None]
  - FEBRILE NEUTROPENIA [None]
